FAERS Safety Report 5108755-8 (Version None)
Quarter: 2006Q3

REPORT INFORMATION
  Report Type: 
  Country: None (occurrence: None)
  Receive Date: 20060918
  Receipt Date: 20060906
  Transmission Date: 20061208
  Serious: Yes (Other)
  Sender: FDA-Public Use
  Company Number: 2006108381

PATIENT
  Age: 64 Year
  Sex: Male
  Weight: 64.4108 kg

DRUGS (14)
  1. TIKOSYN [Suspect]
     Indication: ATRIAL FIBRILLATION
     Dosage: 500 MCG (250 MCG, FREQUENCY: BID INTERVAL: EVERY DAY)
  2. POTASSIUM (POTASSIUM) [Suspect]
     Indication: BLOOD POTASSIUM DECREASED
  3. FUROSEMIDE [Concomitant]
  4. COREG [Concomitant]
  5. ISOSORBIDE DINITRATE [Concomitant]
  6. GLYBURIDE [Concomitant]
  7. DIGOXIN [Concomitant]
  8. ASPIRIN [Concomitant]
  9. COLCHICINE [Concomitant]
  10. ALLOPURINOL [Concomitant]
  11. ALTACE [Concomitant]
  12. COUMADIN [Concomitant]
  13. METOLAZONE [Concomitant]
  14. IMODIUM [Concomitant]

REACTIONS (9)
  - ABDOMINAL STRANGULATED HERNIA [None]
  - ASCITES [None]
  - ATRIAL FIBRILLATION [None]
  - BLOOD POTASSIUM DECREASED [None]
  - CARDIAC PACEMAKER INSERTION [None]
  - DISEASE RECURRENCE [None]
  - HERNIA [None]
  - HIGH DENSITY LIPOPROTEIN DECREASED [None]
  - INFUSION SITE PAIN [None]
